FAERS Safety Report 6343600-4 (Version None)
Quarter: 2009Q3

REPORT INFORMATION
  Report Type: 
  Country: None (occurrence: None)
  Receive Date: 20090908
  Receipt Date: 20090901
  Transmission Date: 20100115
  Serious: Yes (Hospitalization)
  Sender: FDA-Public Use
  Company Number: US-BAYER-200920684NA

PATIENT
  Age: 44 Year
  Sex: Male
  Weight: 80 kg

DRUGS (9)
  1. NEXAVAR [Suspect]
     Indication: HEPATIC NEOPLASM MALIGNANT
     Dosage: TOTAL DAILY DOSE: 400 MG  UNIT DOSE: 200 MG
     Route: 048
     Dates: start: 20090424, end: 20090601
  2. NEXAVAR [Suspect]
     Dosage: TOTAL DAILY DOSE: 800 MG  UNIT DOSE: 200 MG
     Route: 048
     Dates: start: 20090601, end: 20090801
  3. ALDACTONE [Concomitant]
     Dosage: TOTAL DAILY DOSE: 100 MG
     Route: 048
  4. LASIX [Concomitant]
     Dosage: TOTAL DAILY DOSE: 80 MG
  5. OXYCODONE [Concomitant]
     Dosage: 5/325
  6. ZOFRAN [Concomitant]
     Dosage: AS USED: 8 MG
     Route: 048
  7. COMPAZINE [Concomitant]
     Dosage: AS USED: 10 MG
     Route: 048
  8. MORPHINE [Concomitant]
     Dosage: TOTAL DAILY DOSE: 90 MG
     Route: 048
  9. LACTULOSE [Concomitant]
     Dosage: TOTAL DAILY DOSE: 30 ML
     Route: 048

REACTIONS (7)
  - COMA [None]
  - DYSPHONIA [None]
  - HEADACHE [None]
  - HEPATIC ENCEPHALOPATHY [None]
  - MUSCLE SPASMS [None]
  - NAUSEA [None]
  - VOMITING [None]
